FAERS Safety Report 7636508-5 (Version None)
Quarter: 2011Q3

REPORT INFORMATION
  Report Type: 
  Country: None (occurrence: None)
  Receive Date: 20110726
  Receipt Date: 20110711
  Transmission Date: 20111222
  Serious: Yes (Hospitalization)
  Sender: FDA-Public Use
  Company Number: SE-PFIZER INC-2011168483

PATIENT
  Age: 18 Year
  Sex: Female

DRUGS (3)
  1. ATARAX [Suspect]
     Dosage: 600 MG, SINGLE
     Route: 048
     Dates: start: 20110511, end: 20110511
  2. ALPRAZOLAM [Suspect]
     Dosage: 6 DF, UNK
  3. IBUPROFEN [Suspect]
     Dosage: 12 G, SINGLE
     Route: 048
     Dates: start: 20110511, end: 20110511

REACTIONS (6)
  - BACK PAIN [None]
  - ANXIETY [None]
  - SUICIDE ATTEMPT [None]
  - FATIGUE [None]
  - DYSARTHRIA [None]
  - ACIDOSIS [None]
